FAERS Safety Report 4371749-4 (Version None)
Quarter: 2004Q2

REPORT INFORMATION
  Report Type: 
  Country: None (occurrence: None)
  Receive Date: 20040602
  Receipt Date: 20040517
  Transmission Date: 20050107
  Serious: Yes (Disabling)
  Sender: FDA-Public Use
  Company Number: 04H-167-0261275-00

PATIENT
  Age: 59 Year
  Sex: Male

DRUGS (1)
  1. HEPARIN SODIUM [Suspect]
     Indication: ANTICOAGULANT THERAPY

REACTIONS (14)
  - DISSEMINATED INTRAVASCULAR COAGULATION [None]
  - EPIDERMOLYSIS [None]
  - FOOT AMPUTATION [None]
  - GANGRENE [None]
  - GENERAL PHYSICAL HEALTH DETERIORATION [None]
  - HEPARIN-INDUCED THROMBOCYTOPENIA [None]
  - INFUSION SITE REACTION [None]
  - INJECTION SITE NECROSIS [None]
  - PAIN IN EXTREMITY [None]
  - PHLEBOTHROMBOSIS [None]
  - POSTOPERATIVE WOUND COMPLICATION [None]
  - PULMONARY INFARCTION [None]
  - SKIN GRAFT [None]
  - SKIN NECROSIS [None]
